FAERS Safety Report 22252496 (Version 2)
Quarter: 2023Q2

REPORT INFORMATION
  Report Type: Report from Study
  Country: JP (occurrence: JP)
  Receive Date: 20230426
  Receipt Date: 20230602
  Transmission Date: 20230722
  Serious: Yes (Other)
  Sender: FDA-Public Use
  Company Number: JP-TAKEDA-2023TJP005004

PATIENT
  Age: 62 Year
  Sex: Male

DRUGS (4)
  1. LEUPROLIDE ACETATE [Suspect]
     Active Substance: LEUPROLIDE ACETATE
     Indication: Bulbospinal muscular atrophy congenital
     Dosage: 11.25 MILLIGRAM, Q3MONTHS
     Route: 058
     Dates: start: 20220119
  2. RIVOTRIL [Concomitant]
     Active Substance: CLONAZEPAM
     Indication: Bulbospinal muscular atrophy congenital
     Dosage: UNK
     Route: 065
  3. RIVOTRIL [Concomitant]
     Active Substance: CLONAZEPAM
     Indication: Bulbospinal muscular atrophy congenital
     Dosage: DOSE FORM UNKNOWN
     Route: 065
  4. RIVOTRIL [Concomitant]
     Active Substance: CLONAZEPAM
     Indication: Bulbospinal muscular atrophy congenital
     Dosage: 1 MILLIGRAM
     Route: 065
     Dates: start: 20220928, end: 20220928

REACTIONS (1)
  - Back pain [Recovering/Resolving]

NARRATIVE: CASE EVENT DATE: 20221221
